FAERS Safety Report 11151124 (Version 1)
Quarter: 2015Q2

REPORT INFORMATION
  Report Type: Spontaneous
  Country: UG (occurrence: None)
  Receive Date: 20150528
  Receipt Date: 20150528
  Transmission Date: 20150821
  Serious: Yes (Life-Threatening, Hospitalization, Disabling, Other)
  Sender: FDA-Public Use
  Company Number: UG2015GSK071186

PATIENT
  Age: 32 Year
  Sex: Female

DRUGS (8)
  1. RALTEGRAVIR [Concomitant]
     Active Substance: RALTEGRAVIR
  2. LAMIVUDINE (LAMIVUDINE) UNKNOWN [Suspect]
     Active Substance: LAMIVUDINE
     Dates: start: 20150223
  3. ZIDOVUDINE (ZIDOVUDINE) UNKNOWN) [Suspect]
     Active Substance: ZIDOVUDINE
     Dates: start: 20150223
  4. NEVIRAPINE. [Concomitant]
     Active Substance: NEVIRAPINE
  5. ISONIAZID. [Concomitant]
     Active Substance: ISONIAZID
  6. VITAMIN B6 [Concomitant]
     Active Substance: PYRIDOXINE HYDROCHLORIDE
  7. COTRIMOXAZOLE [Suspect]
     Active Substance: SULFAMETHOXAZOLE\TRIMETHOPRIM
     Dates: start: 20150216
  8. FLUCONAZOLE. [Concomitant]
     Active Substance: FLUCONAZOLE

REACTIONS (5)
  - Sepsis [None]
  - Vomiting [None]
  - Dysstasia [None]
  - Diarrhoea [None]
  - Anaemia [None]

NARRATIVE: CASE EVENT DATE: 20150429
